FAERS Safety Report 12278700 (Version 14)
Quarter: 2018Q4

REPORT INFORMATION
  Report Type: Report from Study
  Country: US (occurrence: US)
  Receive Date: 20160418
  Receipt Date: 20181022
  Transmission Date: 20190204
  Serious: Yes (Death, Hospitalization, Other)
  Sender: FDA-Public Use
  Company Number: US-ACTELION-A-US2016-134412

PATIENT
  Age: 68 Year
  Sex: Female
  Weight: 83.9 kg

DRUGS (12)
  1. OPSUMIT [Suspect]
     Active Substance: MACITENTAN
     Indication: PULMONARY ARTERIAL HYPERTENSION
     Dosage: 10 MG, QD
     Route: 048
     Dates: start: 20150322
  2. CELEXA [Concomitant]
     Active Substance: CITALOPRAM HYDROBROMIDE
     Dosage: 10 MG, UNK
  3. TEMOVATE [Concomitant]
     Active Substance: CLOBETASOL PROPIONATE
  4. DILTIAZEM. [Concomitant]
     Active Substance: DILTIAZEM
  5. AZELAIC ACID. [Concomitant]
     Active Substance: AZELAIC ACID
     Dosage: 15% TOPICAL GEL
     Route: 061
  6. VITAMIN D3 [Concomitant]
     Active Substance: CHOLECALCIFEROL
     Dosage: 1000 U, UNK
  7. TYVASO [Concomitant]
     Active Substance: TREPROSTINIL
  8. ADCIRCA [Concomitant]
     Active Substance: TADALAFIL
  9. DIPROLENE [Concomitant]
     Active Substance: BETAMETHASONE DIPROPIONATE
     Dosage: 0.05% CREAM
  10. PREVACID [Concomitant]
     Active Substance: LANSOPRAZOLE
  11. DOCUSATE [Concomitant]
     Active Substance: DOCUSATE
  12. ASCORBIC ACID. [Concomitant]
     Active Substance: ASCORBIC ACID
     Dosage: 500 MG, UNK

REACTIONS (15)
  - Haemoglobin decreased [Fatal]
  - Platelet count decreased [Fatal]
  - Infection [Unknown]
  - Thrombocytopenia [Fatal]
  - Petechiae [Fatal]
  - Pyrexia [Unknown]
  - Biopsy bone marrow [Unknown]
  - Abdominal pain [Recovered/Resolved]
  - Cholecystitis acute [Recovered/Resolved]
  - Vomiting [Recovered/Resolved]
  - Nausea [Recovered/Resolved]
  - Acute myeloid leukaemia [Fatal]
  - Anaemia [Fatal]
  - Cholecystectomy [Unknown]
  - Oedema peripheral [Recovered/Resolved]

NARRATIVE: CASE EVENT DATE: 20160314
